FAERS Safety Report 4479003-7 (Version None)
Quarter: 2004Q4

REPORT INFORMATION
  Report Type: 
  Country: None (occurrence: None)
  Receive Date: 20041015
  Receipt Date: 20041004
  Transmission Date: 20050328
  Serious: Yes (Disabling)
  Sender: FDA-Public Use
  Company Number: URSO-2004-020

PATIENT
  Age: 2 Year
  Sex: Female

DRUGS (7)
  1. URSOLVN-200 [Suspect]
     Indication: BILIARY CIRRHOSIS
     Dosage: 200 MG PO
     Route: 048
  2. MOPRAI (OMEPRAZOLE) [Concomitant]
  3. PROPRANOLOL [Concomitant]
  4. FERROUS FUMARATE [Concomitant]
  5. VITAMIN K1 [Concomitant]
  6. FOLIC ACID [Concomitant]
  7. UVESTEROI (VITAMIN A + D2 +E+C) [Concomitant]

REACTIONS (5)
  - GAZE PALSY [None]
  - HYPOGLYCAEMIA [None]
  - HYPOTHERMIA [None]
  - LOSS OF CONSCIOUSNESS [None]
  - PALLOR [None]
